FAERS Safety Report 24757191 (Version 8)
Quarter: 2025Q1

REPORT INFORMATION
  Report Type: Report from Study
  Country: ES (occurrence: ES)
  Receive Date: 20241220
  Receipt Date: 20250319
  Transmission Date: 20250409
  Serious: Yes (Hospitalization)
  Sender: ABBVIE
  Company Number: ES-ABBVIE-5995180

PATIENT
  Age: 79 Year
  Sex: Female

DRUGS (2)
  1. CARBIDOPA\LEVODOPA [Suspect]
     Active Substance: CARBIDOPA\LEVODOPA
     Indication: Parkinson^s disease
     Route: 050
     Dates: start: 20230412
  2. CARBIDOPA\LEVODOPA [Suspect]
     Active Substance: CARBIDOPA\LEVODOPA

REACTIONS (25)
  - Musculoskeletal stiffness [Recovered/Resolved]
  - Urine analysis abnormal [Recovered/Resolved]
  - Akinesia [Not Recovered/Not Resolved]
  - Drug ineffective [Unknown]
  - Gait disturbance [Not Recovered/Not Resolved]
  - Somnolence [Recovering/Resolving]
  - Infection [Unknown]
  - On and off phenomenon [Recovering/Resolving]
  - Bedridden [Unknown]
  - Respiratory tract infection [Recovered/Resolved]
  - Parkinson^s disease [Recovering/Resolving]
  - Oxygen saturation abnormal [Recovered/Resolved]
  - Urinary tract infection [Recovered/Resolved]
  - Therapeutic product effect decreased [Not Recovered/Not Resolved]
  - Pyrexia [Not Recovered/Not Resolved]
  - Fatigue [Recovering/Resolving]
  - Apathy [Recovered/Resolved]
  - General physical health deterioration [Recovering/Resolving]
  - Dizziness [Recovered/Resolved]
  - Anaemia [Recovering/Resolving]
  - Therapeutic product effect incomplete [Unknown]
  - Freezing phenomenon [Unknown]
  - Asthenia [Unknown]
  - Urinary tract infection [Recovered/Resolved]
  - Respiratory tract infection [Recovered/Resolved]

NARRATIVE: CASE EVENT DATE: 20240101
